FAERS Safety Report 20979723 (Version 1)
Quarter: 2022Q2

REPORT INFORMATION
  Report Type: Spontaneous
  Country: US (occurrence: US)
  Receive Date: 20220620
  Receipt Date: 20220620
  Transmission Date: 20220720
  Serious: Yes (Hospitalization)
  Sender: FDA-Public Use
  Company Number: US-CELGENE-USA-20220205454

PATIENT
  Age: 62 Year
  Sex: Female
  Weight: 95.25 kg

DRUGS (3)
  1. REVLIMID [Suspect]
     Active Substance: LENALIDOMIDE
     Indication: Plasma cell myeloma
     Dosage: 15 MILLIGRAM
     Route: 048
     Dates: start: 201701
  2. REVLIMID [Suspect]
     Active Substance: LENALIDOMIDE
     Dosage: 10 MILLIGRAM
     Route: 048
     Dates: start: 20171129
  3. REVLIMID [Suspect]
     Active Substance: LENALIDOMIDE
     Dosage: DAILY X 28-DAY CYCLE
     Route: 048
     Dates: start: 20170127

REACTIONS (4)
  - Blood magnesium decreased [Recovered/Resolved]
  - White blood cell count decreased [Unknown]
  - Diarrhoea [Unknown]
  - Blood potassium decreased [Recovered/Resolved]
